FAERS Safety Report 5831080-4 (Version None)
Quarter: 2008Q3

REPORT INFORMATION
  Report Type: 
  Country: None (occurrence: None)
  Receive Date: 20080801
  Receipt Date: 20080331
  Transmission Date: 20090109
  Serious: Yes (Hospitalization)
  Sender: FDA-Public Use
  Company Number: US-BRISTOL-MYERS SQUIBB COMPANY-14131858

PATIENT

DRUGS (1)
  1. COUMADIN [Suspect]
     Dosage: LOT# FOR 5MG ARE 7B29676B AND 7G30602B, 2.5MG IS 7F29241A, 2MG IS 7E23789A, 1MG IS 7F23789A

REACTIONS (1)
  - INTERNATIONAL NORMALISED RATIO DECREASED [None]
